FAERS Safety Report 25974382 (Version 1)
Quarter: 2025Q4

REPORT INFORMATION
  Report Type: Spontaneous
  Country: US (occurrence: None)
  Receive Date: 20251028
  Receipt Date: 20251028
  Transmission Date: 20260118
  Serious: Yes (Life-Threatening, Hospitalization)
  Sender: FDA-CTU
  Company Number: None

PATIENT
  Age: 70 Year
  Sex: Female
  Weight: 85.5 kg

DRUGS (11)
  1. FENTANYL [Suspect]
     Active Substance: FENTANYL
     Indication: Procedural pain
     Dates: start: 20250224, end: 20250224
  2. ROBAXIN [Suspect]
     Active Substance: METHOCARBAMOL
     Indication: Procedural pain
     Dates: start: 20250224, end: 20250224
  3. HYDROMORPHONE [Suspect]
     Active Substance: HYDROMORPHONE
  4. OXYCODONE [Suspect]
     Active Substance: OXYCODONE
  5. BENAZEPRIL [Concomitant]
     Active Substance: BENAZEPRIL HYDROCHLORIDE
  6. OMEPRAZOLE [Concomitant]
     Active Substance: OMEPRAZOLE
  7. ZETIA [Concomitant]
     Active Substance: EZETIMIBE
  8. SINGULAIR [Concomitant]
     Active Substance: MONTELUKAST SODIUM
  9. FERROUS GLUCONATE [Suspect]
     Active Substance: FERROUS GLUCONATE
  10. VITAMIN D3 [Concomitant]
     Active Substance: CHOLECALCIFEROL
  11. OMEGA 3 [Concomitant]
     Active Substance: CAPSAICIN

REACTIONS (2)
  - Respiratory distress [None]
  - Respiratory failure [None]

NARRATIVE: CASE EVENT DATE: 20250224
